FAERS Safety Report 17191695 (Version 1)
Quarter: 2020Q1

REPORT INFORMATION
  Report Type: Spontaneous
  Country: US (occurrence: US)
  Receive Date: 20191222
  Receipt Date: 20191222
  Transmission Date: 20200409
  Serious: Yes (Disabling)
  Sender: FDA-Public Use
  Company Number: None

PATIENT
  Age: 11 Year
  Weight: 42 kg

DRUGS (2)
  1. NIX [Suspect]
     Active Substance: PERMETHRIN
     Indication: LICE INFESTATION
     Dosage: ?          QUANTITY:1 APPLICATIONS;?
     Route: 061
     Dates: start: 19991010, end: 19991010
  2. DAILY FLUORIDE SUPPLEMENT [Concomitant]

REACTIONS (2)
  - Dermatitis atopic [None]
  - Food allergy [None]

NARRATIVE: CASE EVENT DATE: 19991010
